FAERS Safety Report 14720220 (Version 1)
Quarter: 2018Q1

REPORT INFORMATION
  Report Type: Spontaneous
  Country: US (occurrence: US)
  Receive Date: 20180330
  Receipt Date: 20180330
  Transmission Date: 20180509
  Serious: Yes (Life-Threatening, Hospitalization)
  Sender: FDA-Public Use
  Company Number: None

PATIENT
  Age: 62 Year
  Sex: Male
  Weight: 98 kg

DRUGS (1)
  1. POSACONAZOLE [Suspect]
     Active Substance: POSACONAZOLE
     Indication: WOUND INFECTION
     Route: 048
     Dates: start: 20170625, end: 20170709

REACTIONS (9)
  - Torsade de pointes [None]
  - Cellulitis [None]
  - Myositis [None]
  - Clostridium bacteraemia [None]
  - Dizziness [None]
  - Ventricular tachycardia [None]
  - Wound infection [None]
  - Electrocardiogram QT prolonged [None]
  - Loss of consciousness [None]

NARRATIVE: CASE EVENT DATE: 20170709
